FAERS Safety Report 8847280 (Version 6)
Quarter: 2013Q3

REPORT INFORMATION
  Report Type: Report from Study
  Country: CA (occurrence: CA)
  Receive Date: 20121018
  Receipt Date: 20130703
  Transmission Date: 20140515
  Serious: Yes (Other)
  Sender: FDA-Public Use
  Company Number: CA-ROCHE-1102139

PATIENT
  Age: 66 Year
  Sex: Female
  Weight: 80.7 kg

DRUGS (11)
  1. ACTEMRA [Suspect]
     Indication: RHEUMATOID ARTHRITIS
     Route: 042
     Dates: start: 20110411
  2. ACTEMRA [Suspect]
     Route: 042
     Dates: start: 20110910
  3. ACTEMRA [Suspect]
     Route: 042
     Dates: start: 20121010
  4. ACTEMRA [Suspect]
     Route: 042
     Dates: start: 20121011
  5. SYNTHROID [Concomitant]
  6. PLAQUENIL [Concomitant]
  7. METHOTREXATE [Concomitant]
  8. PREDNISONE [Concomitant]
  9. FOLIC ACID [Concomitant]
  10. OMEGA 3 [Concomitant]
  11. ACTONEL [Concomitant]

REACTIONS (10)
  - Foot deformity [Recovered/Resolved]
  - Papilloma [Not Recovered/Not Resolved]
  - Osteomyelitis [Not Recovered/Not Resolved]
  - Drug effect decreased [Unknown]
  - Pain in extremity [Not Recovered/Not Resolved]
  - Pain in extremity [Not Recovered/Not Resolved]
  - Arthralgia [Not Recovered/Not Resolved]
  - Cough [Recovered/Resolved]
  - Arthralgia [Not Recovered/Not Resolved]
  - Glossodynia [Not Recovered/Not Resolved]
